FAERS Safety Report 5141036-5 (Version None)
Quarter: 2006Q4

REPORT INFORMATION
  Report Type: 
  Country: None (occurrence: None)
  Receive Date: 20061026
  Receipt Date: 20061019
  Transmission Date: 20070319
  Serious: Yes (Other)
  Sender: FDA-Public Use
  Company Number: 2006-02733

PATIENT
  Age: 54 Year
  Sex: Female
  Weight: 53 kg

DRUGS (6)
  1. VELCADE [Suspect]
     Indication: MULTIPLE MYELOMA
     Dosage: 1.30 MG, INTRAVENOUS
     Route: 042
     Dates: start: 20060530, end: 20060912
  2. VELCADE [Suspect]
  3. VELCADE [Suspect]
  4. ZOMETA [Concomitant]
  5. FAMVIR [Concomitant]
  6. LYRICA [Concomitant]

REACTIONS (3)
  - FAECAL INCONTINENCE [None]
  - POLYNEUROPATHY [None]
  - WALKING AID USER [None]
